FAERS Safety Report 10183022 (Version 1)
Quarter: 2014Q2

REPORT INFORMATION
  Report Type: Report from Study
  Country: CN (occurrence: CN)
  Receive Date: 20140520
  Receipt Date: 20140520
  Transmission Date: 20141212
  Serious: Yes (Death, Life-Threatening)
  Sender: FDA-Public Use
  Company Number: CN-AMGEN-CHNCT2014036922

PATIENT
  Age: 53 Year
  Sex: Male

DRUGS (5)
  1. DARBEPOETIN ALFA [Suspect]
     Indication: NEPHROGENIC ANAEMIA
     Dosage: 10 MUG, QWK
     Route: 042
     Dates: start: 20140218, end: 20140512
  2. AMLODIPINE [Concomitant]
     Dosage: 5 MG, QD
     Route: 065
  3. SIMVASTATIN [Concomitant]
     Dosage: 20 MG, QD(QN)
     Route: 065
  4. EZETIMIBE [Concomitant]
     Dosage: 10 MG, QD(QN)
     Route: 065
  5. GANSULIN R                         /00646001/ [Concomitant]
     Dosage: 16U/MORNING; 8U/NIGHT, BID
     Route: 065

REACTIONS (1)
  - Cerebral haemorrhage [Fatal]
